FAERS Safety Report 6330415-6 (Version None)
Quarter: 2009Q3

REPORT INFORMATION
  Report Type: 
  Country: None (occurrence: None)
  Receive Date: 20090827
  Receipt Date: 20071228
  Transmission Date: 20100115
  Serious: Yes (Hospitalization)
  Sender: FDA-Public Use
  Company Number: US-ASTRAZENECA-2007UW14144

PATIENT
  Age: 764 Month
  Sex: Male
  Weight: 83 kg

DRUGS (33)
  1. SEROQUEL [Suspect]
     Indication: SCHIZOPHRENIA
     Dosage: 100 TO 200 MG
     Route: 048
     Dates: start: 20020101, end: 20030101
  2. SEROQUEL [Suspect]
     Indication: BIPOLAR DISORDER
     Dosage: 100 TO 200 MG
     Route: 048
     Dates: start: 20020101, end: 20030101
  3. SEROQUEL [Suspect]
     Indication: DEPRESSION
     Dosage: 100 TO 200 MG
     Route: 048
     Dates: start: 20020101, end: 20030101
  4. SEROQUEL [Suspect]
     Indication: SLEEP DISORDER
     Dosage: 100 TO 200 MG
     Route: 048
     Dates: start: 20020101, end: 20030101
  5. SEROQUEL [Suspect]
     Indication: HYPERVIGILANCE
     Dosage: 100 TO 200 MG
     Route: 048
     Dates: start: 20020101, end: 20030101
  6. SEROQUEL [Suspect]
     Indication: AGITATION
     Dosage: 100 TO 200 MG
     Route: 048
     Dates: start: 20020101, end: 20030101
  7. SEROQUEL [Suspect]
     Route: 048
     Dates: start: 20030518
  8. SEROQUEL [Suspect]
     Route: 048
     Dates: start: 20030518
  9. SEROQUEL [Suspect]
     Route: 048
     Dates: start: 20030518
  10. SEROQUEL [Suspect]
     Route: 048
     Dates: start: 20030518
  11. SEROQUEL [Suspect]
     Route: 048
     Dates: start: 20030518
  12. SEROQUEL [Suspect]
     Route: 048
     Dates: start: 20030518
  13. RISPERDAL [Concomitant]
  14. RISPERDAL [Concomitant]
     Dates: start: 20030516
  15. ZYPREXA [Concomitant]
  16. DOXEPIN HCL [Concomitant]
     Dosage: DOSE: 50 MG TO 150 MG DAILY
     Dates: start: 20000605
  17. GLUCOTROL [Concomitant]
     Dosage: STRENGTH: 5 MG, 10 MG. DOSE: 10 MG TO 20 MG DAILY
     Dates: start: 20000605
  18. LORTAB [Concomitant]
     Dates: start: 20030523
  19. AMBIEN [Concomitant]
     Indication: SLEEP DISORDER
     Dates: start: 20050712
  20. ASPIRIN [Concomitant]
     Dosage: STRENGTH: 80 MG, 325 MG. DOSE: 80 MG DAILY
     Dates: start: 20010713
  21. AVANDIA [Concomitant]
     Indication: DIABETES MELLITUS
     Dates: start: 20050718
  22. VISTARIL [Concomitant]
     Indication: ANXIETY
     Dosage: STRENGTH: 50 MG, DOSE: 50 MG EVERY FOUR HOURLY AS REQUIRED
     Dates: start: 20031215
  23. VISTARIL [Concomitant]
     Indication: AGITATION
     Dosage: STRENGTH: 50 MG, DOSE: 50 MG EVERY FOUR HOURLY AS REQUIRED
     Dates: start: 20031215
  24. ULTRAM [Concomitant]
     Dosage: STRENGTH: 50 MG EVERY FOUR HOURLY AS REQUIRED
     Dates: start: 20031215
  25. ZOLOFT [Concomitant]
     Dosage: STRENGTH: 50 MG, 100 MG. DOSE: 100 MG DAILY
     Dates: start: 19931020
  26. TRILEPTAL [Concomitant]
     Dosage: DOSE: 450 MG DAILY
     Dates: start: 20031006
  27. TRILAFON [Concomitant]
     Dates: start: 20031006
  28. WELLBUTRIN [Concomitant]
     Dosage: DOSE: 150 MG DAILY
     Dates: start: 20031006
  29. DEPAKOTE [Concomitant]
     Dosage: DOSE: 3000 MG DAILY
     Dates: start: 20010713
  30. ZOCOR [Concomitant]
     Route: 048
     Dates: start: 20060705
  31. METOPROLOL [Concomitant]
     Route: 048
     Dates: start: 20060706
  32. LISINOPRIL [Concomitant]
     Route: 048
     Dates: start: 20060705
  33. DOLOBID [Concomitant]
     Dosage: DOSE: 1000 MG DAILY
     Dates: start: 20010713

REACTIONS (4)
  - ACUTE MYOCARDIAL INFARCTION [None]
  - CHEST PAIN [None]
  - DIABETES MELLITUS [None]
  - SLEEP DISORDER [None]
